FAERS Safety Report 21715145 (Version 1)
Quarter: 2022Q4

REPORT INFORMATION
  Report Type: Report from Study
  Country: US (occurrence: US)
  Receive Date: 20221212
  Receipt Date: 20221212
  Transmission Date: 20230112
  Serious: Yes (Other)
  Sender: FDA-Public Use
  Company Number: US-ELI_LILLY_AND_COMPANY-US202212001803

PATIENT
  Age: 56 Year
  Weight: 72.562 kg

DRUGS (2)
  1. ZYPREXA RELPREVV [Suspect]
     Active Substance: OLANZAPINE PAMOATE
     Indication: Schizophrenia
     Dosage: 300 MG, UNKNOWN
     Route: 030
  2. CLOZAPINE [Concomitant]
     Active Substance: CLOZAPINE
     Indication: Product used for unknown indication
     Dosage: 25 MG, UNKNOWN
     Route: 048
     Dates: start: 20221201

REACTIONS (5)
  - Post-injection delirium sedation syndrome [Unknown]
  - Dizziness [Unknown]
  - Asthenia [Unknown]
  - Dysarthria [Unknown]
  - Yellow skin [Unknown]

NARRATIVE: CASE EVENT DATE: 20221201
